FAERS Safety Report 4523334-9 (Version None)
Quarter: 2004Q4

REPORT INFORMATION
  Report Type: 
  Country: None (occurrence: None)
  Receive Date: 20041210
  Receipt Date: 20041129
  Transmission Date: 20050328
  Serious: Yes (Hospitalization)
  Sender: FDA-Public Use
  Company Number: PHBS2004JP16154

PATIENT
  Age: 44 Year
  Sex: Male
  Weight: 57 kg

DRUGS (1)
  1. CYCLOSPORINE [Suspect]
     Indication: STEM CELL TRANSPLANT
     Route: 065

REACTIONS (5)
  - CHEST X-RAY ABNORMAL [None]
  - COMPUTERISED TOMOGRAM ABNORMAL [None]
  - DYSPNOEA [None]
  - LUNG INFILTRATION [None]
  - PLEURAL EFFUSION [None]
